FAERS Safety Report 7359224-6 (Version None)
Quarter: 2011Q1

REPORT INFORMATION
  Report Type: 
  Country: None (occurrence: None)
  Receive Date: 20110317
  Receipt Date: 20110304
  Transmission Date: 20110831
  Serious: Yes (Other)
  Sender: FDA-Public Use
  Company Number: PHHY2011US18618

PATIENT
  Age: 86 Year
  Sex: Female

DRUGS (4)
  1. RECLAST [Suspect]
  2. ICMELOXICAM [Concomitant]
  3. BIACTIVE [Concomitant]
  4. FOSAMAX [Concomitant]

REACTIONS (4)
  - FRACTURE [None]
  - DYSPHAGIA [None]
  - FALL [None]
  - GAIT DISTURBANCE [None]
